FAERS Safety Report 10985696 (Version 1)
Quarter: 2015Q2

REPORT INFORMATION
  Report Type: Spontaneous
  Country: US (occurrence: US)
  Receive Date: 20150404
  Receipt Date: 20150404
  Transmission Date: 20150821
  Serious: No
  Sender: FDA-Public Use
  Company Number: US-SA-2014SA040847

PATIENT
  Age: 84 Year
  Sex: Female

DRUGS (1)
  1. ALLEGRA-D [Suspect]
     Active Substance: FEXOFENADINE\PSEUDOEPHEDRINE
     Route: 048

REACTIONS (5)
  - Eye disorder [Unknown]
  - Eye irritation [Unknown]
  - Blood pressure abnormal [Unknown]
  - Amnesia [Unknown]
  - Seasonal allergy [Unknown]
